FAERS Safety Report 8021940-0 (Version None)
Quarter: 2011Q4

REPORT INFORMATION
  Report Type: 
  Country: None (occurrence: None)
  Receive Date: 20111230
  Receipt Date: 20111219
  Transmission Date: 20120403
  Serious: Yes (Hospitalization, Other)
  Sender: FDA-Public Use
  Company Number: 2011MA017868

PATIENT
  Sex: Female
  Weight: 98.8842 kg

DRUGS (35)
  1. ASPIRIN [Concomitant]
  2. COREG [Concomitant]
  3. DILANTIN [Concomitant]
  4. HYDRALAZINE HCL [Concomitant]
  5. NITROGLYCERIN [Concomitant]
  6. SULAR [Concomitant]
  7. AMBIEN [Concomitant]
  8. METOPROLOL SUCCINATE [Concomitant]
  9. CATAPRES [Concomitant]
  10. CLOXIDIEN [Concomitant]
  11. JANTOVEN [Concomitant]
  12. LASIX [Concomitant]
  13. MORPHINE SULFATE [Concomitant]
  14. NORVASC [Concomitant]
  15. PERCOCET [Concomitant]
  16. COUMADIN [Concomitant]
  17. PAXIL [Concomitant]
  18. PHENERGAN [Concomitant]
  19. PRILOSEC [Concomitant]
  20. KEFLEX [Concomitant]
  21. MIDRIN [Concomitant]
  22. VICODIN [Concomitant]
  23. DIGOXIN [Suspect]
     Indication: PRODUCT USED FOR UNKNOWN INDICATION
     Dosage: 0.125 MG
     Dates: start: 20081217
  24. ATIVAN [Concomitant]
  25. DEPAKOTE [Concomitant]
  26. LIDOCAINE [Concomitant]
  27. LISINOPRIL [Concomitant]
  28. NIPRIDE [Concomitant]
  29. AMITRIPTYLINE HCL [Concomitant]
  30. ELAVIL [Concomitant]
  31. TOPAMAX [Concomitant]
  32. TRILEPTIL [Concomitant]
  33. XANAX [Concomitant]
  34. ZAROXOLYN [Concomitant]
  35. CALCITRIOL [Concomitant]

REACTIONS (38)
  - ABDOMINAL PAIN [None]
  - TREATMENT NONCOMPLIANCE [None]
  - HEADACHE [None]
  - TRANSIENT ISCHAEMIC ATTACK [None]
  - HYPERTENSION [None]
  - URINARY INCONTINENCE [None]
  - FALL [None]
  - CORONARY ARTERY DISEASE [None]
  - COAGULOPATHY [None]
  - CONTUSION [None]
  - LIGAMENT SPRAIN [None]
  - MUSCLE STRAIN [None]
  - DYSSTASIA [None]
  - TENOSYNOVITIS [None]
  - PULMONARY EMBOLISM [None]
  - INTERVERTEBRAL DISC DEGENERATION [None]
  - INTERVERTEBRAL DISC DISPLACEMENT [None]
  - SINUS TACHYCARDIA [None]
  - MITRAL VALVE INCOMPETENCE [None]
  - IGA NEPHROPATHY [None]
  - RENAL DISORDER [None]
  - TENDONITIS [None]
  - ATRIOVENTRICULAR BLOCK FIRST DEGREE [None]
  - INTERNATIONAL NORMALISED RATIO DECREASED [None]
  - NERVOUS SYSTEM DISORDER [None]
  - PAIN IN EXTREMITY [None]
  - FLANK PAIN [None]
  - CARDIAC FAILURE CONGESTIVE [None]
  - RADICULOPATHY [None]
  - MUSCLE SPASMS [None]
  - RENAL FAILURE CHRONIC [None]
  - FAECAL INCONTINENCE [None]
  - MIGRAINE [None]
  - CEREBROVASCULAR ACCIDENT [None]
  - MALIGNANT HYPERTENSION [None]
  - CEREBRAL ISCHAEMIA [None]
  - MYOCARDIAL ISCHAEMIA [None]
  - VENTRICULAR EXTRASYSTOLES [None]
